FAERS Safety Report 21422146 (Version 1)
Quarter: 2022Q4

REPORT INFORMATION
  Report Type: Spontaneous
  Country: US (occurrence: US)
  Receive Date: 20221007
  Receipt Date: 20221007
  Transmission Date: 20230113
  Serious: Yes (Other)
  Sender: FDA-Public Use
  Company Number: US-Shilpa Medicare Limited-SML-US-2022-01241

PATIENT
  Age: 57 Year
  Sex: Female

DRUGS (3)
  1. ERLOTINIB [Suspect]
     Active Substance: ERLOTINIB
     Indication: Non-small cell lung cancer metastatic
     Dates: start: 20150405
  2. ERLOTINIB [Suspect]
     Active Substance: ERLOTINIB
     Dosage: AT A LOWER DOSE (LESS THAN 25 TO 50 MG/DAY)
  3. PHENYLBUTYRIC ACID [Suspect]
     Active Substance: PHENYLBUTYRIC ACID
     Indication: Non-small cell lung cancer metastatic
     Dosage: ON A DAILY BASIS, FIVE TIMES/WEEK.

REACTIONS (3)
  - Disease recurrence [Unknown]
  - Gene mutation [Unknown]
  - Drug resistance [Unknown]

NARRATIVE: CASE EVENT DATE: 20180710
